FAERS Safety Report 24332959 (Version 1)
Quarter: 2024Q3

REPORT INFORMATION
  Report Type: Spontaneous
  Country: CA (occurrence: CA)
  Receive Date: 20240918
  Receipt Date: 20240918
  Transmission Date: 20241016
  Serious: Yes (Other)
  Sender: BRACCO
  Company Number: CA-BRACCO-2024CA05785

PATIENT
  Age: 42 Year
  Sex: Female

DRUGS (1)
  1. ISOVUE 370 [Suspect]
     Active Substance: IOPAMIDOL
     Dosage: UNK, SINGLE
     Route: 042

REACTIONS (1)
  - Dysphagia [Recovered/Resolved]
